FAERS Safety Report 9883635 (Version 2)
Quarter: 2014Q1

REPORT INFORMATION
  Report Type: Spontaneous
  Country: JP (occurrence: JP)
  Receive Date: 20140210
  Receipt Date: 20140210
  Transmission Date: 20141002
  Serious: Yes (Hospitalization)
  Sender: FDA-Public Use
  Company Number: JP-ROCHE-1306977

PATIENT
  Age: 37 Year
  Sex: Female
  Weight: 55 kg

DRUGS (9)
  1. AVASTIN [Suspect]
     Indication: BREAST CANCER METASTATIC
     Dosage: TREATMENT LINE: 5 AND COMPLETED TREATMENT CYCLE NUMBER: 5
     Route: 041
     Dates: start: 20130614, end: 20131025
  2. XELODA [Suspect]
     Indication: BREAST CANCER METASTATIC
     Dosage: DOSAGE IS UNCERTAIN.
     Route: 048
     Dates: start: 20121102, end: 20121228
  3. FARMORUBICIN [Suspect]
     Indication: BREAST CANCER METASTATIC
     Dosage: DOSAGE IS UNCERTAIN.
     Route: 041
     Dates: start: 20120719, end: 20120925
  4. ENDOXAN [Suspect]
     Indication: BREAST CANCER METASTATIC
     Dosage: DOSAGE IS UNCERTAIN.
     Route: 041
     Dates: start: 20120719, end: 20120925
  5. ERIBULIN MESILATE [Suspect]
     Indication: BREAST CANCER METASTATIC
     Dosage: DOSAGE IS UNCERTAIN.
     Route: 042
     Dates: start: 20130122, end: 20130514
  6. PACLITAXEL [Suspect]
     Indication: BREAST CANCER METASTATIC
     Dosage: COMPLETED TREATMENT CYCLE NUMBER: 5
     Route: 042
     Dates: start: 20130614, end: 20131025
  7. BLOPRESS [Concomitant]
     Route: 065
     Dates: start: 20131109
  8. DIGOXIN [Concomitant]
     Route: 065
     Dates: start: 20131109, end: 20131118
  9. SPIRONOLACTONE [Concomitant]
     Route: 065
     Dates: start: 20131111

REACTIONS (4)
  - Cardiomyopathy [Recovering/Resolving]
  - Cardiac failure [Recovering/Resolving]
  - Bronchitis [Unknown]
  - Nasopharyngitis [Recovering/Resolving]
